FAERS Safety Report 14934666 (Version 1)
Quarter: 2018Q2

REPORT INFORMATION
  Report Type: Spontaneous
  Country: US (occurrence: US)
  Receive Date: 20180505
  Receipt Date: 20180505
  Transmission Date: 20180711
  Serious: Yes (Disabling)
  Sender: FDA-Public Use
  Company Number: None

PATIENT
  Age: 27 Year
  Sex: Male
  Weight: 54.9 kg

DRUGS (1)
  1. BENZODIAZEPINES [Suspect]
     Active Substance: BENZODIAZEPINE

REACTIONS (8)
  - Mood swings [None]
  - Blood glucose fluctuation [None]
  - Palpitations [None]
  - Dizziness [None]
  - Weight decreased [None]
  - Withdrawal syndrome [None]
  - Fear [None]
  - Muscle tightness [None]

NARRATIVE: CASE EVENT DATE: 20160901
